FAERS Safety Report 25368732 (Version 1)
Quarter: 2025Q2

REPORT INFORMATION
  Report Type: Spontaneous
  Country: RO (occurrence: RO)
  Receive Date: 20250528
  Receipt Date: 20250528
  Transmission Date: 20250717
  Serious: Yes (Other)
  Sender: PFIZER
  Company Number: RO-PFIZER INC-PV202500050277

PATIENT
  Age: 66 Year
  Sex: Male
  Weight: 84 kg

DRUGS (5)
  1. MEDROL [Suspect]
     Active Substance: METHYLPREDNISOLONE
     Indication: Myasthenia gravis
     Dosage: 16 MG, DAILY
     Route: 048
     Dates: start: 2023
  2. INSULIN NOS [Concomitant]
     Active Substance: INSULIN NOS
     Indication: Diabetes mellitus
  3. VITAMIN D NOS [Concomitant]
     Active Substance: CHOLECALCIFEROL\ERGOCALCIFEROL
  4. VITAMIN C [Concomitant]
     Active Substance: ASCORBIC ACID
  5. POTASSIUM [Concomitant]
     Active Substance: POTASSIUM

REACTIONS (9)
  - Diabetes mellitus inadequate control [Unknown]
  - Drug dependence [Unknown]
  - Joint destruction [Unknown]
  - Infection [Unknown]
  - Nasopharyngitis [Not Recovered/Not Resolved]
  - Secretion discharge [Not Recovered/Not Resolved]
  - Bone pain [Not Recovered/Not Resolved]
  - Hyperhidrosis [Unknown]
  - Off label use [Unknown]

NARRATIVE: CASE EVENT DATE: 20230101
